FAERS Safety Report 26162262 (Version 1)
Quarter: 2025Q4

REPORT INFORMATION
  Report Type: Spontaneous
  Country: US (occurrence: None)
  Receive Date: 20251216
  Receipt Date: 20251216
  Transmission Date: 20260117
  Serious: Yes (Other)
  Sender: UCB
  Company Number: US-UCBSA-2025078933

PATIENT
  Age: 22 Year

DRUGS (5)
  1. LEVETIRACETAM [Suspect]
     Active Substance: LEVETIRACETAM
     Indication: Subdural haematoma
     Dosage: UNK
  2. LEVETIRACETAM [Suspect]
     Active Substance: LEVETIRACETAM
     Indication: Off label use
  3. FIORICET [Concomitant]
     Active Substance: ACETAMINOPHEN\BUTALBITAL\CAFFEINE
     Indication: Post lumbar puncture syndrome
     Dosage: UNK
  4. OFIRMEV [Concomitant]
     Active Substance: ACETAMINOPHEN
     Indication: Post lumbar puncture syndrome
     Dosage: UNK
  5. THEOPHYLLINE [Concomitant]
     Active Substance: THEOPHYLLINE
     Indication: Post lumbar puncture syndrome
     Dosage: UNK

REACTIONS (4)
  - Subdural haematoma [Unknown]
  - Condition aggravated [Unknown]
  - Brain herniation [Unknown]
  - Off label use [Unknown]
